FAERS Safety Report 9604587 (Version 1)
Quarter: 2013Q4

REPORT INFORMATION
  Report Type: Spontaneous
  Country: FR (occurrence: FR)
  Receive Date: 20131008
  Receipt Date: 20131008
  Transmission Date: 20140711
  Serious: Yes (Other)
  Sender: FDA-Public Use
  Company Number: FR-EISAI INC-E2090-02904-SPO-FR

PATIENT
  Age: 23 Year
  Sex: Male

DRUGS (4)
  1. ZONEGRAN [Suspect]
     Indication: EPILEPSY
     Dosage: 200 MG PER DAY
     Route: 048
     Dates: start: 20110401, end: 2013
  2. URBANYL [Concomitant]
     Dosage: UNKNOWN
  3. VIMPAT [Concomitant]
     Dosage: UNKNOWN
  4. ZEBINIX [Concomitant]
     Dosage: UNKNOWN

REACTIONS (1)
  - Nephrolithiasis [Unknown]
